FAERS Safety Report 18650912 (Version 2)
Quarter: 2022Q1

REPORT INFORMATION
  Report Type: Spontaneous
  Country: CA (occurrence: CA)
  Receive Date: 20201222
  Receipt Date: 20220215
  Transmission Date: 20220423
  Serious: Yes (Other)
  Sender: FDA-Public Use
  Company Number: CA-BAUSCH-BL-2020-038231

PATIENT
  Age: 53 Year
  Sex: Male
  Weight: 116 kg

DRUGS (10)
  1. BUDESONIDE [Suspect]
     Active Substance: BUDESONIDE
     Indication: Product used for unknown indication
     Route: 065
  2. ADVAIR HFA [Suspect]
     Active Substance: FLUTICASONE PROPIONATE\SALMETEROL XINAFOATE
     Indication: Product used for unknown indication
     Dosage: SPRAY, METERED
     Route: 065
  3. FLUTICASONE FUROATE [Suspect]
     Active Substance: FLUTICASONE FUROATE
     Indication: Product used for unknown indication
     Dosage: SPRAY, METERED
     Route: 045
  4. FLUTICASONE FUROATE\VILANTEROL TRIFENATATE [Suspect]
     Active Substance: FLUTICASONE FUROATE\VILANTEROL TRIFENATATE
     Indication: Product used for unknown indication
     Route: 065
  5. FLUTICASONE FUROATE\VILANTEROL TRIFENATATE [Suspect]
     Active Substance: FLUTICASONE FUROATE\VILANTEROL TRIFENATATE
     Route: 065
  6. MONTELUKAST [Suspect]
     Active Substance: MONTELUKAST SODIUM
     Indication: Product used for unknown indication
     Route: 065
  7. SINGULAIR [Suspect]
     Active Substance: MONTELUKAST SODIUM
     Indication: Product used for unknown indication
     Route: 065
  8. SPIRIVA [Suspect]
     Active Substance: TIOTROPIUM BROMIDE MONOHYDRATE
     Indication: Product used for unknown indication
     Route: 065
  9. VENTOLIN [Suspect]
     Active Substance: ALBUTEROL SULFATE
     Indication: Product used for unknown indication
     Route: 065
  10. NUCALA [Concomitant]
     Active Substance: MEPOLIZUMAB
     Indication: Product used for unknown indication
     Dates: start: 20191112, end: 20191209

REACTIONS (8)
  - Asthma [Unknown]
  - Dyspnoea [Recovered/Resolved]
  - Obstructive airways disorder [Unknown]
  - Forced expiratory volume decreased [Not Recovered/Not Resolved]
  - Wheezing [Recovering/Resolving]
  - Sleep disorder due to a general medical condition [Not Recovered/Not Resolved]
  - Loss of personal independence in daily activities [Recovering/Resolving]
  - Therapeutic product effect incomplete [Recovering/Resolving]
